FAERS Safety Report 10163509 (Version 1)
Quarter: 2014Q2

REPORT INFORMATION
  Report Type: Spontaneous
  Country: US (occurrence: US)
  Receive Date: 20140509
  Receipt Date: 20140509
  Transmission Date: 20141212
  Serious: Yes (Death, Hospitalization, Other)
  Sender: FDA-Public Use
  Company Number: US-ELI_LILLY_AND_COMPANY-US201405001282

PATIENT
  Age: 80 Year
  Sex: Male

DRUGS (2)
  1. HUMULIN NPH [Suspect]
     Indication: DIABETES MELLITUS
     Route: 065
  2. HUMULIN 30% REGULAR, 70% NPH [Suspect]
     Indication: DIABETES MELLITUS
     Route: 065

REACTIONS (7)
  - Death [Fatal]
  - Multi-organ failure [Unknown]
  - Sepsis [Unknown]
  - Gallbladder disorder [Unknown]
  - Disease complication [Unknown]
  - Blood glucose decreased [Unknown]
  - Asthenia [Unknown]
